FAERS Safety Report 15345610 (Version 1)
Quarter: 2018Q4

REPORT INFORMATION
  Report Type: Spontaneous
  Country: IN (occurrence: IN)
  Receive Date: 20180904
  Receipt Date: 20180904
  Transmission Date: 20190204
  Serious: No
  Sender: FDA-Public Use
  Company Number: IN-LUPIN LIMITED-2018-05901

PATIENT
  Age: 52 Year
  Sex: Male
  Weight: 65 kg

DRUGS (1)
  1. CREMA PEG [Suspect]
     Indication: BOWEL PREPARATION
     Dosage: UNK (FULL PACK IN 2 HOURS)
     Route: 048
     Dates: start: 20180806, end: 20180806

REACTIONS (1)
  - Drug ineffective [Unknown]
